FAERS Safety Report 4754242-6 (Version None)
Quarter: 2005Q3

REPORT INFORMATION
  Report Type: 
  Country: None (occurrence: None)
  Receive Date: 20050826
  Receipt Date: 20050826
  Transmission Date: 20060218
  Serious: No
  Sender: FDA-Public Use
  Company Number: None

PATIENT
  Age: 18 Year
  Sex: Male

DRUGS (1)
  1. PATELLA TENDON ALLOGRAFT [Suspect]
     Dosage: MODEL 46B002
     Dates: start: 20050808

REACTIONS (3)
  - GRAFT COMPLICATION [None]
  - METHICILLIN-RESISTANT STAPHYLOCOCCAL AUREUS TEST POSITIVE [None]
  - PHARMACEUTICAL PRODUCT COMPLAINT [None]
